FAERS Safety Report 8216015 (Version 3)
Quarter: 2014Q2

REPORT INFORMATION
  Report Type: Report from Study
  Country: DE (occurrence: DE)
  Receive Date: 20111031
  Receipt Date: 20140414
  Transmission Date: 20141212
  Serious: Yes (Death, Hospitalization)
  Sender: FDA-Public Use
  Company Number: DE-ROCHE-649898

PATIENT
  Age: 51 Year
  Sex: Female
  Weight: 78 kg

DRUGS (2)
  1. BEVACIZUMAB [Suspect]
     Indication: BREAST CANCER METASTATIC
     Dosage: APPLICATION ON 25-JUN-2009 AND ON 9-JUL-2009
     Route: 042
  2. TAXOL [Concomitant]
     Indication: BREAST CANCER METASTATIC
     Dosage: APPLICATION ON 25-JUN-2009 AND ON 7-JUL-2009, LOW DOSE
     Route: 042

REACTIONS (3)
  - Cerebral infarction [Fatal]
  - Hemiparesis [Unknown]
  - Confusional state [Unknown]
